FAERS Safety Report 4849743-6 (Version None)
Quarter: 2005Q4

REPORT INFORMATION
  Report Type: 
  Country: None (occurrence: None)
  Receive Date: 20051115
  Receipt Date: 20050930
  Transmission Date: 20060501
  Serious: No
  Sender: FDA-Public Use
  Company Number: S05-USA-04455-01

PATIENT
  Age: 77 Year
  Sex: Male

DRUGS (12)
  1. NAMENDA [Suspect]
     Indication: DEMENTIA ALZHEIMER'S TYPE
     Dosage: 10 MG BID PO
     Route: 048
     Dates: start: 20050925, end: 20050929
  2. NAMENDA [Suspect]
     Indication: DEMENTIA ALZHEIMER'S TYPE
     Dosage: 5 MG QD PO
     Route: 048
     Dates: start: 20050904, end: 20050910
  3. NAMENDA [Suspect]
     Indication: DEMENTIA ALZHEIMER'S TYPE
     Dosage: 5 MG BID PO
     Route: 048
     Dates: start: 20050911, end: 20050917
  4. NAMENDA [Suspect]
     Indication: DEMENTIA ALZHEIMER'S TYPE
     Dosage: 15 MG QD PO
     Route: 048
     Dates: start: 20050918, end: 20050924
  5. RAZADYNE (GALANTAMINE) [Concomitant]
  6. SYNTHROID [Concomitant]
  7. NORVASC [Concomitant]
  8. ZETIA [Concomitant]
  9. COUMADIN [Concomitant]
  10. LIPITOR [Concomitant]
  11. TENORMIN [Concomitant]
  12. ZYRTEC [Concomitant]

REACTIONS (3)
  - ASTHENIA [None]
  - CONSTIPATION [None]
  - FATIGUE [None]
